FAERS Safety Report 24267708 (Version 2)
Quarter: 2024Q3

REPORT INFORMATION
  Report Type: Report from Study
  Country: IT (occurrence: IT)
  Receive Date: 20240830
  Receipt Date: 20240903
  Transmission Date: 20241017
  Serious: Yes (Other)
  Sender: UCB
  Company Number: IT-UCBSA-2023026102

PATIENT
  Age: 27 Year
  Sex: Male

DRUGS (38)
  1. BRIVARACETAM [Suspect]
     Active Substance: BRIVARACETAM
     Indication: Lennox-Gastaut syndrome
     Dosage: UNK
  2. BRIVARACETAM [Suspect]
     Active Substance: BRIVARACETAM
     Indication: Infantile spasms
  3. BRIVARACETAM [Suspect]
     Active Substance: BRIVARACETAM
     Indication: Off label use
  4. LACOSAMIDE [Suspect]
     Active Substance: LACOSAMIDE
     Indication: Lennox-Gastaut syndrome
     Dosage: UNK
  5. LACOSAMIDE [Suspect]
     Active Substance: LACOSAMIDE
     Indication: Infantile spasms
  6. LACOSAMIDE [Suspect]
     Active Substance: LACOSAMIDE
     Indication: Off label use
  7. LEVETIRACETAM [Suspect]
     Active Substance: LEVETIRACETAM
     Indication: Lennox-Gastaut syndrome
     Dosage: UNK
  8. LEVETIRACETAM [Suspect]
     Active Substance: LEVETIRACETAM
     Indication: Infantile spasms
  9. LEVETIRACETAM [Suspect]
     Active Substance: LEVETIRACETAM
     Indication: Off label use
  10. CORTICOTROPIN [Suspect]
     Active Substance: CORTICOTROPIN
     Indication: Lennox-Gastaut syndrome
     Dosage: UNK
  11. CORTICOTROPIN [Suspect]
     Active Substance: CORTICOTROPIN
     Indication: Infantile spasms
  12. CLOBAZAM [Interacting]
     Active Substance: CLOBAZAM
     Indication: Lennox-Gastaut syndrome
     Dosage: 30 MILLIGRAM PER DAY
  13. CLOBAZAM [Interacting]
     Active Substance: CLOBAZAM
     Indication: Infantile spasms
     Dosage: 10 MILLIGRAM PER DAY
  14. CLONAZEPAM [Suspect]
     Active Substance: CLONAZEPAM
     Indication: Lennox-Gastaut syndrome
     Dosage: UNK
  15. CLONAZEPAM [Suspect]
     Active Substance: CLONAZEPAM
     Indication: Infantile spasms
  16. ESLICARBAZEPINE [Suspect]
     Active Substance: ESLICARBAZEPINE
     Indication: Lennox-Gastaut syndrome
     Dosage: UNK
  17. ESLICARBAZEPINE [Suspect]
     Active Substance: ESLICARBAZEPINE
     Indication: Infantile spasms
  18. ETHOSUXIMIDE [Suspect]
     Active Substance: ETHOSUXIMIDE
     Indication: Lennox-Gastaut syndrome
     Dosage: UNK
  19. ETHOSUXIMIDE [Suspect]
     Active Substance: ETHOSUXIMIDE
     Indication: Infantile spasms
  20. VIGABATRIN [Suspect]
     Active Substance: VIGABATRIN
     Indication: Lennox-Gastaut syndrome
     Dosage: UNK
  21. VIGABATRIN [Suspect]
     Active Substance: VIGABATRIN
     Indication: Infantile spasms
  22. LAMOTRIGINE [Suspect]
     Active Substance: LAMOTRIGINE
     Indication: Lennox-Gastaut syndrome
     Dosage: UNK
  23. LAMOTRIGINE [Suspect]
     Active Substance: LAMOTRIGINE
     Indication: Infantile spasms
  24. NITRAZEPAM [Suspect]
     Active Substance: NITRAZEPAM
     Indication: Lennox-Gastaut syndrome
     Dosage: UNK
  25. NITRAZEPAM [Suspect]
     Active Substance: NITRAZEPAM
     Indication: Infantile spasms
  26. PHENOBARBITAL [Suspect]
     Active Substance: PHENOBARBITAL
     Indication: Lennox-Gastaut syndrome
     Dosage: UNK
  27. PHENOBARBITAL [Suspect]
     Active Substance: PHENOBARBITAL
     Indication: Infantile spasms
  28. PERAMPANEL [Suspect]
     Active Substance: PERAMPANEL
     Indication: Lennox-Gastaut syndrome
     Dosage: UNK
  29. PERAMPANEL [Suspect]
     Active Substance: PERAMPANEL
     Indication: Infantile spasms
  30. RUFINAMIDE [Suspect]
     Active Substance: RUFINAMIDE
     Indication: Lennox-Gastaut syndrome
     Dosage: UNK
  31. RUFINAMIDE [Suspect]
     Active Substance: RUFINAMIDE
     Indication: Infantile spasms
  32. TOPIRAMATE [Suspect]
     Active Substance: TOPIRAMATE
     Indication: Lennox-Gastaut syndrome
     Dosage: UNK
  33. TOPIRAMATE [Suspect]
     Active Substance: TOPIRAMATE
     Indication: Infantile spasms
  34. VALPROATE [Suspect]
     Active Substance: VALPROIC ACID
     Indication: Lennox-Gastaut syndrome
     Dosage: 800 MILLIGRAM PER DAY
  35. VALPROATE [Suspect]
     Active Substance: VALPROIC ACID
     Indication: Infantile spasms
  36. ZONISAMIDE [Suspect]
     Active Substance: ZONISAMIDE
     Indication: Lennox-Gastaut syndrome
     Dosage: 300 MILLIGRAM PER DAY
  37. ZONISAMIDE [Suspect]
     Active Substance: ZONISAMIDE
     Indication: Infantile spasms
  38. CENOBAMATE [Interacting]
     Active Substance: CENOBAMATE
     Indication: Lennox-Gastaut syndrome

REACTIONS (4)
  - Somnolence [Recovered/Resolved]
  - Drug interaction [Recovered/Resolved]
  - Multiple-drug resistance [Unknown]
  - Off label use [Unknown]
